FAERS Safety Report 21385100 (Version 2)
Quarter: 2022Q4

REPORT INFORMATION
  Report Type: Other
  Country: DE (occurrence: DE)
  Receive Date: 20220928
  Receipt Date: 20221018
  Transmission Date: 20230113
  Serious: Yes (Death, Hospitalization)
  Sender: FDA-Public Use
  Company Number: DE-MACLEODS PHARMACEUTICALS US LTD-MAC2022037586

PATIENT

DRUGS (10)
  1. RIVASTIGMINE [Interacting]
     Active Substance: RIVASTIGMINE
     Indication: Product used for unknown indication
     Dosage: 4.6 MILLIGRAM, QD (1-0-0-0), TRANSDERMAL PATCH
     Route: 062
  2. DOMPERIDONE [Interacting]
     Active Substance: DOMPERIDONE
     Indication: Product used for unknown indication
     Dosage: 10 MILLIGRAM, TID (1-1-1-0), SUSPENSION
     Route: 048
  3. CARBIDOPA\LEVODOPA [Interacting]
     Active Substance: CARBIDOPA\LEVODOPA
     Indication: Product used for unknown indication
     Dosage: UNK UNK, QD (25|100 MG, 0-0-1-0, EXTENDED-RELEASE TABLETS)
     Route: 048
  4. CARBIDOPA\ENTACAPONE\LEVODOPA [Interacting]
     Active Substance: CARBIDOPA\ENTACAPONE\LEVODOPA
     Indication: Product used for unknown indication
     Dosage: UNK UNK, QID (25|200|100 MG, 1-1-1-1)
     Route: 048
  5. BENSERAZIDE\LEVODOPA [Interacting]
     Active Substance: BENSERAZIDE\LEVODOPA
     Indication: Product used for unknown indication
     Dosage: UNK, QD (25|100 MG, 1-0-0-0)
     Route: 048
  6. SCOPOLAMINE [Interacting]
     Active Substance: SCOPOLAMINE
     Indication: Product used for unknown indication
     Dosage: 0.33 MILLIGRAM (ACCORDING TO THE SCHEME)
     Route: 062
  7. ROPINIROLE [Interacting]
     Active Substance: ROPINIROLE
     Indication: Product used for unknown indication
     Dosage: 4 MILLIGRAM, QD, 1-0-0-0,
     Route: 048
  8. ESOMEPRAZOLE [Concomitant]
     Active Substance: ESOMEPRAZOLE
     Indication: Product used for unknown indication
     Dosage: 40 MILLIGRAM, QD (1-0-0-0)
     Route: 048
  9. CHOLECALCIFEROL [Concomitant]
     Active Substance: CHOLECALCIFEROL
     Indication: Product used for unknown indication
     Dosage: 1000 INTERNATIONAL UNIT, QD , QD (1-0-0-0)
     Route: 048
  10. FOLIC ACID [Concomitant]
     Active Substance: FOLIC ACID
     Indication: Product used for unknown indication
     Dosage: 5 MILLIGRAM, QD (1-0-0-0)
     Route: 048

REACTIONS (9)
  - Death [Fatal]
  - Disturbance in attention [Unknown]
  - Fall [Unknown]
  - Vomiting [Unknown]
  - Craniocerebral injury [Unknown]
  - Aspiration [Unknown]
  - Thrombocytopenia [Unknown]
  - Labelled drug-drug interaction medication error [Unknown]
  - Incorrect product dosage form administered [Unknown]

NARRATIVE: CASE EVENT DATE: 20210501
